FAERS Safety Report 6017735-X (Version None)
Quarter: 2008Q4

REPORT INFORMATION
  Report Type: 
  Country: None (occurrence: None)
  Receive Date: 20081223
  Receipt Date: 20081219
  Transmission Date: 20090506
  Serious: Yes (Other)
  Sender: FDA-Public Use
  Company Number: US-ASTRAZENECA-2008UW28427

PATIENT
  Age: 34 Year
  Sex: Female
  Weight: 122.5 kg

DRUGS (1)
  1. SEROQUEL [Suspect]
     Indication: INSOMNIA
     Dosage: 25MG, 100MG
     Route: 048
     Dates: start: 20031201, end: 20041201

REACTIONS (10)
  - DIARRHOEA [None]
  - DRUG EXPOSURE DURING PREGNANCY [None]
  - DYSTONIA [None]
  - LIMB INJURY [None]
  - NEUROPATHY PERIPHERAL [None]
  - NIGHT SWEATS [None]
  - PAIN [None]
  - PARALYSIS [None]
  - TYPE 2 DIABETES MELLITUS [None]
  - VOMITING [None]
